FAERS Safety Report 8742960 (Version 2)
Quarter: 2012Q4

REPORT INFORMATION
  Report Type: 
  Country: ES (occurrence: None)
  Receive Date: 20120807
  Receipt Date: 20120814
  Transmission Date: 20130627
  Serious: Yes (Other)
  Sender: FDA-Public Use
  Company Number: 2012AP002284

PATIENT
  Sex: Female

DRUGS (8)
  1. LEVOFLOXACIN [Suspect]
     Indication: DISSEMINATED TUBERCULOSIS
  2. LEVOFLOXACIN [Suspect]
     Indication: OFF LABEL USE
  3. ISONIAZID [Suspect]
     Indication: DISSEMINATED TUBERCULOSIS
  4. ETHAMBUTOL HYDROCHLORIDE [Concomitant]
  5. PYRAZINAMIDE [Concomitant]
  6. SIROLIMUS [Concomitant]
  7. PYRAZINAMIDE (PYRAZINAMIDE) [Suspect]
     Indication: DISSEMINATED TUBERCULOSIS
  8. ETHAMBUTOL (ETHAMBUTOL) [Suspect]
     Indication: DISSEMINATED TUBERCULOSIS

REACTIONS (3)
  - Drug-induced liver injury [None]
  - Arthralgia [None]
  - Off label use [None]
